FAERS Safety Report 18023972 (Version 2)
Quarter: 2020Q3

REPORT INFORMATION
  Report Type: Spontaneous
  Country: US (occurrence: US)
  Receive Date: 20200715
  Receipt Date: 20200807
  Transmission Date: 20201103
  Serious: Yes (Other)
  Sender: FDA-Public Use
  Company Number: US-BAYER-2020-142217

PATIENT
  Age: 26 Year
  Sex: Female

DRUGS (1)
  1. KYLEENA [Suspect]
     Active Substance: LEVONORGESTREL
     Indication: CONTRACEPTION
     Dosage: 17.5 ?G PER DAY CONINUOUSLY
     Route: 015
     Dates: start: 20190507

REACTIONS (3)
  - Embedded device [Not Recovered/Not Resolved]
  - Polymenorrhoea [None]
  - Coital bleeding [None]

NARRATIVE: CASE EVENT DATE: 20200701
